FAERS Safety Report 6641638-0 (Version None)
Quarter: 2010Q1

REPORT INFORMATION
  Report Type: 
  Country: None (occurrence: None)
  Receive Date: 20100317
  Receipt Date: 20100317
  Transmission Date: 20100710
  Serious: Yes (Other)
  Sender: FDA-Public Use
  Company Number: None

PATIENT
  Age: 53 Year
  Sex: Female
  Weight: 61.2 kg

DRUGS (6)
  1. LEVOFLOXACIN [Suspect]
     Indication: INFECTION
     Dosage: 500MG ONCE IV
     Route: 042
     Dates: start: 20091218
  2. LISINOPRIL [Concomitant]
  3. MINOCYCLINE HCL [Concomitant]
  4. OXYCODONE HCL AND ACETAMINOPHEN [Concomitant]
  5. CALCIUM ACETATE [Concomitant]
  6. ALBUTEROL [Concomitant]

REACTIONS (1)
  - PRURITUS [None]
